FAERS Safety Report 19063361 (Version 2)
Quarter: 2021Q2

REPORT INFORMATION
  Report Type: Spontaneous
  Country: HK (occurrence: HK)
  Receive Date: 20210326
  Receipt Date: 20210407
  Transmission Date: 20210717
  Serious: Yes (Other)
  Sender: FDA-Public Use
  Company Number: HK-BAYER-2020-277702

PATIENT
  Age: 25 Year
  Sex: Female

DRUGS (2)
  1. NERVINE [Concomitant]
     Indication: BIPOLAR DISORDER
     Dosage: UNK
  2. YASMIN [Suspect]
     Active Substance: DROSPIRENONE\ETHINYL ESTRADIOL
     Indication: CONTRACEPTION
     Dosage: UNK
     Route: 048
     Dates: start: 2018

REACTIONS (5)
  - Withdrawal bleed [Not Recovered/Not Resolved]
  - Extra dose administered [None]
  - Product dose omission issue [None]
  - Angina pectoris [Recovered/Resolved]
  - Inappropriate schedule of product administration [None]

NARRATIVE: CASE EVENT DATE: 20201023
